FAERS Safety Report 4979686-9 (Version None)
Quarter: 2006Q2

REPORT INFORMATION
  Report Type: 
  Country: None (occurrence: None)
  Receive Date: 20060418
  Receipt Date: 20060411
  Transmission Date: 20061013
  Serious: Yes (Other)
  Sender: FDA-Public Use
  Company Number: 200610475GDS

PATIENT
  Age: 42 Year
  Sex: Female

DRUGS (1)
  1. CIPROFLOXACIN [Suspect]
     Indication: ABSCESS
     Dosage: 500 MG, BID, ORAL
     Route: 048
     Dates: start: 19990701, end: 19990724

REACTIONS (8)
  - ALANINE AMINOTRANSFERASE INCREASED [None]
  - ASPARTATE AMINOTRANSFERASE INCREASED [None]
  - BLOOD ALKALINE PHOSPHATASE INCREASED [None]
  - IMMUNOGLOBULINS INCREASED [None]
  - JAUNDICE [None]
  - LEUKOCYTOSIS [None]
  - LYMPHADENOPATHY [None]
  - PRURITUS [None]
